FAERS Safety Report 4331604-2 (Version None)
Quarter: 2004Q1

REPORT INFORMATION
  Report Type: 
  Country: None (occurrence: None)
  Receive Date: 20040329
  Receipt Date: 20040319
  Transmission Date: 20041129
  Serious: No
  Sender: FDA-Public Use
  Company Number: 2004UW05433

PATIENT
  Age: 24 Year
  Sex: Male

DRUGS (5)
  1. SEROQUEL [Suspect]
     Indication: ANXIETY
     Dosage: 100 MG HS PO
     Route: 048
  2. SEROQUEL [Suspect]
     Indication: INSOMNIA
     Dosage: 100 MG HS PO
     Route: 048
  3. SEROQUEL [Suspect]
     Indication: IRRITABILITY
     Dosage: 100 MG HS PO
     Route: 048
  4. THIAMINE [Concomitant]
  5. MULTI-VITAMINS [Concomitant]

REACTIONS (3)
  - HEPATIC ENZYME INCREASED [None]
  - JAUNDICE [None]
  - LETHARGY [None]
